FAERS Safety Report 4466724-5 (Version None)
Quarter: 2004Q4

REPORT INFORMATION
  Report Type: 
  Country: None (occurrence: None)
  Receive Date: 20041001
  Receipt Date: 20040922
  Transmission Date: 20050328
  Serious: Yes (Hospitalization, Other)
  Sender: FDA-Public Use
  Company Number: 230129M04USA

PATIENT
  Age: 48 Year
  Sex: Female
  Weight: 208 kg

DRUGS (7)
  1. REBIF [Suspect]
     Indication: MULTIPLE SCLEROSIS
     Dosage: 44 MCG, 3 IN 1 WEEKS, SUBCUTANEOUS
     Route: 058
     Dates: start: 20040416, end: 20040601
  2. GLUCOPHAGE [Concomitant]
  3. VIOXX [Concomitant]
  4. LEXAPRO [Concomitant]
  5. ACTOS [Concomitant]
  6. DITROPAN [Concomitant]
  7. DEXEDRINE (DEXAMFETAMINE SULFATE) [Concomitant]

REACTIONS (2)
  - CARDIAC FAILURE CONGESTIVE [None]
  - VIRAL PERICARDITIS [None]
